FAERS Safety Report 8394772-1 (Version None)
Quarter: 2012Q2

REPORT INFORMATION
  Report Type: 
  Country: None (occurrence: None)
  Receive Date: 20120524
  Receipt Date: 20120511
  Transmission Date: 20120825
  Serious: Yes (Death)
  Sender: FDA-Public Use
  Company Number: UTC-018360

PATIENT
  Age: 58 Year
  Sex: 0
  Weight: 142 kg

DRUGS (2)
  1. REMODULIN [Suspect]
     Indication: HYPERTENSION
     Dosage: 18.72 UG/KG (0.013 UG/KG, 1 IN 1 MIN),INTRAVENOUS
     Route: 042
     Dates: start: 20111203
  2. REMODULIN [Suspect]
     Indication: PULMONARY ARTERIAL HYPERTENSION
     Dosage: 18.72 UG/KG (0.013 UG/KG, 1 IN 1 MIN),INTRAVENOUS
     Route: 042
     Dates: start: 20111203

REACTIONS (1)
  - DEATH [None]
